FAERS Safety Report 7730752-4 (Version None)
Quarter: 2011Q3

REPORT INFORMATION
  Report Type: 
  Country: None (occurrence: None)
  Receive Date: 20110906
  Receipt Date: 20110830
  Transmission Date: 20111222
  Serious: Yes (Other)
  Sender: FDA-Public Use
  Company Number: NL-GLAXOSMITHKLINE-B0743866A

PATIENT
  Sex: Male
  Weight: 75 kg

DRUGS (1)
  1. PAROXETINE HCL [Suspect]
     Indication: PANIC DISORDER
     Route: 048
     Dates: start: 19990101, end: 20110618

REACTIONS (2)
  - POLYNEUROPATHY [None]
  - ERECTILE DYSFUNCTION [None]
